FAERS Safety Report 10576432 (Version 8)
Quarter: 2015Q4

REPORT INFORMATION
  Report Type: Report from Study
  Country: JP (occurrence: JP)
  Receive Date: 20141111
  Receipt Date: 20151211
  Transmission Date: 20160304
  Serious: Yes (Death, Hospitalization)
  Sender: FDA-Public Use
  Company Number: JP-INCYTE CORPORATION-2014IN003339

PATIENT
  Age: 67 Year
  Sex: Male

DRUGS (1)
  1. JAKAFI [Suspect]
     Active Substance: RUXOLITINIB
     Indication: MYELOFIBROSIS
     Dosage: 5 MG, BID
     Route: 048
     Dates: start: 20141003, end: 20141026

REACTIONS (11)
  - Pneumonia [Fatal]
  - Hypoglycaemia [Unknown]
  - Red blood cell count decreased [Unknown]
  - Haemoglobin decreased [Unknown]
  - Condition aggravated [Fatal]
  - Splenomegaly [Unknown]
  - C-reactive protein increased [Unknown]
  - Respiratory failure [Fatal]
  - Renal disorder [Fatal]
  - Septic shock [Fatal]
  - Platelet count decreased [Unknown]

NARRATIVE: CASE EVENT DATE: 20141025
